FAERS Safety Report 7475151-8 (Version None)
Quarter: 2011Q2

REPORT INFORMATION
  Report Type: 
  Country: None (occurrence: None)
  Receive Date: 20110512
  Receipt Date: 20110506
  Transmission Date: 20111010
  Serious: Yes (Other)
  Sender: FDA-Public Use
  Company Number: GB-BRISTOL-MYERS SQUIBB COMPANY-15590045

PATIENT
  Age: 68 Year
  Sex: Male
  Weight: 83 kg

DRUGS (3)
  1. ALUMINUM HYDROXIDE TAB [Suspect]
     Indication: DYSPEPSIA
     Route: 048
     Dates: start: 20110219
  2. ONGLYZA [Suspect]
     Indication: TYPE 2 DIABETES MELLITUS
     Dates: start: 20110219, end: 20110224
  3. VILDAGLIPTIN [Suspect]

REACTIONS (2)
  - ANAPHYLACTIC REACTION [None]
  - LIP SWELLING [None]
